FAERS Safety Report 15011667 (Version 3)
Quarter: 2018Q3

REPORT INFORMATION
  Report Type: Report from Study
  Country: US (occurrence: US)
  Receive Date: 20180614
  Receipt Date: 20180710
  Transmission Date: 20181010
  Serious: Yes (Congenital Anomaly, Other)
  Sender: FDA-Public Use
  Company Number: US-TEVA-2018-US-905212

PATIENT
  Sex: Female

DRUGS (1)
  1. RIBAVIRIN. [Suspect]
     Active Substance: RIBAVIRIN
     Dosage: 1200 MILLIGRAM DAILY; THE SUSPECT MEDICATION WAS TAKEN BY FATHER
     Route: 065
     Dates: start: 20160321

REACTIONS (6)
  - Cough [Unknown]
  - Developmental hip dysplasia [Unknown]
  - Respiratory disorder [Unknown]
  - Paternal exposure timing unspecified [Unknown]
  - Rash [Unknown]
  - Live birth [Unknown]
